FAERS Safety Report 4519478-8 (Version None)
Quarter: 2004Q4

REPORT INFORMATION
  Report Type: 
  Country: None (occurrence: None)
  Receive Date: 20041202
  Receipt Date: 20041119
  Transmission Date: 20050328
  Serious: Yes (Hospitalization)
  Sender: FDA-Public Use
  Company Number: 209069

PATIENT
  Age: 79 Year
  Sex: Male

DRUGS (5)
  1. RITUXIMAB          (RITUXIMAB) [Suspect]
     Indication: DIFFUSE LARGE B-CELL LYMPHOMA
     Dosage: 530 MG, INTRAVENOUS
     Route: 042
     Dates: start: 20040610
  2. CYCLOPHOSPHAMIDE [Suspect]
     Indication: DIFFUSE LARGE B-CELL LYMPHOMA
     Dosage: 700 MG,
     Dates: start: 20040611
  3. PIRARUBICIN (PIRARUBICIN) [Concomitant]
  4. VINCRISTINE [Concomitant]
  5. PREDNISONE [Concomitant]

REACTIONS (3)
  - BLOOD LACTATE DEHYDROGENASE INCREASED [None]
  - INTERSTITIAL LUNG DISEASE [None]
  - PULMONARY ALVEOLAR HAEMORRHAGE [None]
